FAERS Safety Report 18026839 (Version 2)
Quarter: 2020Q3

REPORT INFORMATION
  Report Type: Spontaneous
  Country: US (occurrence: US)
  Receive Date: 20200715
  Receipt Date: 20200804
  Transmission Date: 20201103
  Serious: Yes (Death, Other)
  Sender: FDA-Public Use
  Company Number: US-GILEAD-2020-0482905

PATIENT
  Age: 68 Year
  Sex: Female
  Weight: 79.82 kg

DRUGS (22)
  1. NOREPINEPHRINE. [Concomitant]
     Active Substance: NOREPINEPHRINE
  2. VASOPRESSIN. [Concomitant]
     Active Substance: VASOPRESSIN
  3. ASCORBIC [Concomitant]
  4. VITAMIN D3 [Concomitant]
     Active Substance: CHOLECALCIFEROL
  5. NOVOLOG [Concomitant]
     Active Substance: INSULIN ASPART
  6. ZINC SULFATE. [Concomitant]
     Active Substance: ZINC SULFATE
  7. ALBUTEROL HFA [Concomitant]
     Active Substance: ALBUTEROL SULFATE
  8. ENOXAPARIN [Concomitant]
     Active Substance: ENOXAPARIN
  9. REMDESIVIR. [Suspect]
     Active Substance: REMDESIVIR
     Indication: COVID-19
     Dosage: 200 MG, QD
     Route: 042
     Dates: start: 20200708, end: 20200708
  10. DOXYCYCLINE. [Concomitant]
     Active Substance: DOXYCYCLINE
  11. FAMOTIDINE. [Concomitant]
     Active Substance: FAMOTIDINE
  12. PLASMA [Concomitant]
     Active Substance: HUMAN PLASMA
     Dosage: UNK
     Dates: start: 20200706
  13. REMDESIVIR. [Suspect]
     Active Substance: REMDESIVIR
     Dosage: 100 MG, QD
     Route: 042
     Dates: start: 20200709, end: 20200709
  14. PROPOFOL. [Concomitant]
     Active Substance: PROPOFOL
  15. NITROGLYCERIN RECIP [Concomitant]
     Active Substance: NITROGLYCERIN
  16. CEFTRIAXONE. [Concomitant]
     Active Substance: CEFTRIAXONE
  17. LOVENOX HP [Concomitant]
     Active Substance: ENOXAPARIN SODIUM
  18. FENTANYL. [Concomitant]
     Active Substance: FENTANYL
  19. IVERMECTIN. [Concomitant]
     Active Substance: IVERMECTIN
  20. DEXAMETHASONE. [Concomitant]
     Active Substance: DEXAMETHASONE
  21. LEVEMIR [Concomitant]
     Active Substance: INSULIN DETEMIR
  22. VITAMIN C + ZINC [Concomitant]
     Active Substance: ASCORBIC ACID\ZINC

REACTIONS (11)
  - Renal failure [Not Recovered/Not Resolved]
  - Congestive cardiomyopathy [Not Recovered/Not Resolved]
  - Acute respiratory failure [Not Recovered/Not Resolved]
  - COVID-19 [Fatal]
  - Cardiac arrest [Not Recovered/Not Resolved]
  - Septic shock [Not Recovered/Not Resolved]
  - Metabolic acidosis [Not Recovered/Not Resolved]
  - Ischaemic hepatitis [Not Recovered/Not Resolved]
  - Acute kidney injury [Not Recovered/Not Resolved]
  - Sepsis [Not Recovered/Not Resolved]
  - Multiple organ dysfunction syndrome [Not Recovered/Not Resolved]

NARRATIVE: CASE EVENT DATE: 20200709
